FAERS Safety Report 4577674-8 (Version None)
Quarter: 2005Q1

REPORT INFORMATION
  Report Type: 
  Country: None (occurrence: None)
  Receive Date: 20050210
  Receipt Date: 20050131
  Transmission Date: 20050727
  Serious: Yes (Life-Threatening)
  Sender: FDA-Public Use
  Company Number: US-MERCK-0502USA00043

PATIENT
  Age: 76 Year
  Sex: Female

DRUGS (2)
  1. VIOXX [Suspect]
     Indication: ARTHRITIS
     Route: 048
     Dates: start: 20030101, end: 20040930
  2. [THERAPY UNSPECIFIED] [Concomitant]
     Indication: BLOOD PRESSURE
     Route: 065

REACTIONS (3)
  - BACK PAIN [None]
  - CARDIAC DISORDER [None]
  - RENAL DISORDER [None]
